FAERS Safety Report 26201678 (Version 1)
Quarter: 2025Q4

REPORT INFORMATION
  Report Type: Spontaneous
  Country: US (occurrence: US)
  Receive Date: 20251226
  Receipt Date: 20251226
  Transmission Date: 20260118
  Serious: Yes (Death, Life-Threatening, Hospitalization)
  Sender: DR REDDYS
  Company Number: None

PATIENT
  Age: 19 Year
  Sex: Male

DRUGS (1)
  1. VALPROIC ACID [Suspect]
     Active Substance: VALPROIC ACID
     Indication: Juvenile myoclonic epilepsy

REACTIONS (9)
  - Pancreatitis necrotising [Fatal]
  - Shock [Fatal]
  - Acute kidney injury [Fatal]
  - Acute hepatic failure [Fatal]
  - Pancreatic failure [Fatal]
  - Abdominal compartment syndrome [Fatal]
  - Coagulopathy [Fatal]
  - Ventricular fibrillation [Fatal]
  - Pulse absent [Fatal]
